FAERS Safety Report 8224760-7 (Version None)
Quarter: 2012Q1

REPORT INFORMATION
  Report Type: 
  Country: None (occurrence: None)
  Receive Date: 20120321
  Receipt Date: 20120316
  Transmission Date: 20120608
  Serious: Yes (Death)
  Sender: FDA-Public Use
  Company Number: CA-CELGENEUS-028-21880-12031986

PATIENT
  Sex: Female

DRUGS (9)
  1. PIPERACILLIN [Concomitant]
     Route: 065
  2. METOPROLOL SUCCINATE [Concomitant]
     Route: 065
  3. REVLIMID [Suspect]
     Indication: MULTIPLE MYELOMA
     Dosage: 5 MILLIGRAM
     Route: 048
     Dates: start: 20120302, end: 20120311
  4. FUROSEMIDE [Concomitant]
     Route: 065
  5. DIMENHYDRINATE [Concomitant]
     Route: 065
  6. MOXIFLOXACIN [Concomitant]
     Route: 065
  7. DEXAMETHASONE [Concomitant]
     Route: 065
  8. DIGOXIN [Concomitant]
     Route: 065
  9. SPIRONOLACTONE [Concomitant]
     Route: 065

REACTIONS (1)
  - DEATH [None]
